FAERS Safety Report 22333296 (Version 1)
Quarter: 2023Q2

REPORT INFORMATION
  Report Type: Spontaneous
  Country: CA (occurrence: CA)
  Receive Date: 20230517
  Receipt Date: 20230517
  Transmission Date: 20230721
  Serious: Yes (Other)
  Sender: FDA-Public Use
  Company Number: CA-FreseniusKabi-FK202306241

PATIENT
  Sex: Male

DRUGS (2)
  1. HYDROMORPHONE HYDROCHLORIDE [Suspect]
     Active Substance: HYDROMORPHONE HYDROCHLORIDE
     Indication: Pain
     Route: 065
  2. CALQUENCE [Suspect]
     Active Substance: ACALABRUTINIB
     Indication: Chronic lymphocytic leukaemia
     Route: 048

REACTIONS (10)
  - Amnesia [Unknown]
  - Contusion [Unknown]
  - Coordination abnormal [Unknown]
  - Hypoacusis [Unknown]
  - Increased tendency to bruise [Unknown]
  - Abnormal dreams [Unknown]
  - Asthenia [Unknown]
  - Decreased appetite [Unknown]
  - Hallucination [Unknown]
  - Tremor [Unknown]
